FAERS Safety Report 17128855 (Version 1)
Quarter: 2019Q4

REPORT INFORMATION
  Report Type: Spontaneous
  Country: CN (occurrence: CN)
  Receive Date: 20191209
  Receipt Date: 20191209
  Transmission Date: 20200122
  Serious: Yes (Other)
  Sender: FDA-Public Use
  Company Number: CN-PFIZER INC-2019510128

PATIENT
  Age: 26 Year
  Sex: Female

DRUGS (6)
  1. PAIDISHENG [Suspect]
     Active Substance: MIRTAZAPINE
     Dosage: 5 DF, UNK
  2. EUTHYROX [Concomitant]
     Active Substance: LEVOTHYROXINE SODIUM
     Dosage: 25 UG IN THE MORNING
  3. DEPAKINE [VALPROATE SODIUM] [Concomitant]
     Active Substance: VALPROATE SODIUM
     Dosage: 500 MG IN THE MORNING
  4. EFEXOR [Suspect]
     Active Substance: VENLAFAXINE HYDROCHLORIDE
     Dosage: 150 MG /MORNING
  5. EFEXOR [Suspect]
     Active Substance: VENLAFAXINE HYDROCHLORIDE
     Dosage: 14 DF, UNK
  6. BUPROPION. [Suspect]
     Active Substance: BUPROPION
     Dosage: 21 DF, UNK

REACTIONS (6)
  - Dry mouth [Unknown]
  - Epilepsy [Unknown]
  - Tachycardia [Unknown]
  - Overdose [Unknown]
  - Urinary retention [Recovered/Resolved]
  - Abnormal dreams [Unknown]
